FAERS Safety Report 8936574 (Version 1)
Quarter: 2012Q4

REPORT INFORMATION
  Report Type: 
  Country: US (occurrence: US)
  Receive Date: 20121130
  Receipt Date: 20121130
  Transmission Date: 20130627
  Serious: Yes (Other)
  Sender: FDA-Public Use
  Company Number: US-BAYER-2012-125557

PATIENT
  Age: 64 Year
  Sex: Male
  Weight: 95.24 kg

DRUGS (2)
  1. BAYER ADVANCED ASPIRIN EXTRA STRENGTH [Suspect]
     Indication: PRODUCT USED FOR UNKNOWN INDICATION
     Dosage: UNK UNK, QD
     Route: 048
     Dates: start: 201210, end: 201210
  2. ASPIRIN [Concomitant]

REACTIONS (3)
  - Glossodynia [Recovered/Resolved]
  - Sinus headache [Recovered/Resolved]
  - Throat irritation [Recovered/Resolved]
